FAERS Safety Report 13065784 (Version 2)
Quarter: 2019Q2

REPORT INFORMATION
  Report Type: Spontaneous
  Country: JP (occurrence: JP)
  Receive Date: 20161227
  Receipt Date: 20190606
  Transmission Date: 20190711
  Serious: Yes (Other)
  Sender: FDA-Public Use
  Company Number: JP-PFIZER INC-2016598679

PATIENT
  Age: 42 Year
  Sex: Female
  Weight: 80 kg

DRUGS (2)
  1. IRRIBOW [Suspect]
     Active Substance: RAMOSETRON HYDROCHLORIDE
     Dosage: 50 UG, 1X/DAY
     Route: 048
     Dates: start: 20161218
  2. CELECOX [Suspect]
     Active Substance: CELECOXIB
     Dosage: 4200 MG, 1X/DAY
     Route: 048
     Dates: start: 20161218

REACTIONS (3)
  - Blood pressure decreased [Unknown]
  - Coma [Unknown]
  - Intentional overdose [Unknown]

NARRATIVE: CASE EVENT DATE: 20161218
